FAERS Safety Report 14706299 (Version 1)
Quarter: 2018Q2

REPORT INFORMATION
  Report Type: Spontaneous
  Country: FR (occurrence: FR)
  Receive Date: 20180402
  Receipt Date: 20180402
  Transmission Date: 20180711
  Serious: Yes (Other)
  Sender: FDA-Public Use
  Company Number: FR-MYLANLABS-2018M1019278

PATIENT
  Age: 21 Year
  Sex: Female

DRUGS (2)
  1. TRAMADOL. [Suspect]
     Active Substance: TRAMADOL
     Indication: TOOTHACHE
     Dosage: 100 MG, TOTAL
     Route: 048
     Dates: start: 20180130
  2. LAMALINE (ACETAMINOPHEN\CAFFEINE\OPIUM) [Interacting]
     Active Substance: ACETAMINOPHEN\CAFFEINE\OPIUM
     Indication: TOOTHACHE
     Dosage: 1 DF, UNK
     Route: 048

REACTIONS (2)
  - Dizziness [Recovered/Resolved]
  - Hot flush [Recovered/Resolved]

NARRATIVE: CASE EVENT DATE: 20180130
